FAERS Safety Report 7967557-5 (Version None)
Quarter: 2011Q4

REPORT INFORMATION
  Report Type: 
  Country: None (occurrence: None)
  Receive Date: 20111209
  Receipt Date: 20111129
  Transmission Date: 20120403
  Serious: Yes (Hospitalization)
  Sender: FDA-Public Use
  Company Number: US-JNJFOC-20050502976

PATIENT
  Sex: Male
  Weight: 74.84 kg

DRUGS (3)
  1. REMICADE [Suspect]
     Indication: RHEUMATOID ARTHRITIS
     Route: 042
     Dates: start: 20050304
  2. METHOTREXATE [Concomitant]
  3. INSULIN PUMP [Concomitant]

REACTIONS (3)
  - PNEUMONIA LEGIONELLA [None]
  - VOMITING [None]
  - DIARRHOEA [None]
